FAERS Safety Report 9915729 (Version 4)
Quarter: 2014Q1

REPORT INFORMATION
  Report Type: Spontaneous
  Country: IT (occurrence: None)
  Receive Date: 20140218
  Receipt Date: 20140324
  Transmission Date: 20141002
  Serious: Yes (Other)
  Sender: FDA-Public Use
  Company Number: AUR-APL-2014-01622

PATIENT
  Age: 84 Year
  Sex: Male

DRUGS (3)
  1. CEFTRIAXONE [Suspect]
     Indication: RESPIRATORY DISORDER
     Dosage: 2GM, 1 D INTRAVENOUS
     Route: 042
     Dates: start: 20140115, end: 20140122
  2. SIMVASTATIN [Suspect]
     Indication: DYSLIPIDAEMIA
     Route: 048
     Dates: start: 20140115, end: 20140122
  3. RIVAROXABAN [Suspect]
     Indication: ATRIAL FIBRILLATION
     Route: 048
     Dates: start: 20140116, end: 20140121

REACTIONS (6)
  - Blood creatine phosphokinase increased [None]
  - Blood lactate dehydrogenase increased [None]
  - Gamma-glutamyltransferase increased [None]
  - Hypertransaminasaemia [None]
  - Aspartate aminotransferase increased [None]
  - Alanine aminotransferase increased [None]
